FAERS Safety Report 7731625-3 (Version None)
Quarter: 2011Q3

REPORT INFORMATION
  Report Type: 
  Country: None (occurrence: None)
  Receive Date: 20110906
  Receipt Date: 20110617
  Transmission Date: 20111222
  Serious: No
  Sender: FDA-Public Use
  Company Number: US-AMGEN-USASP2011031140

PATIENT
  Sex: Male
  Weight: 136.1 kg

DRUGS (3)
  1. XGEVA [Suspect]
     Indication: METASTASES TO BONE
     Dosage: UNK UNK, Q3WK
  2. TAXOTERE [Concomitant]
     Dosage: UNK
  3. LUPRON [Concomitant]
     Dosage: UNK

REACTIONS (2)
  - FATIGUE [None]
  - MALAISE [None]
